FAERS Safety Report 26179780 (Version 1)
Quarter: 2025Q4

REPORT INFORMATION
  Report Type: Spontaneous
  Country: GB (occurrence: GB)
  Receive Date: 20251219
  Receipt Date: 20251219
  Transmission Date: 20260118
  Serious: Yes (Other)
  Sender: TEVA
  Company Number: GB-ROCHE-10000453633

PATIENT
  Age: 67 Year
  Sex: Female

DRUGS (12)
  1. CARBOPLATIN [Suspect]
     Active Substance: CARBOPLATIN
     Indication: Small cell lung cancer
     Dosage: D1
     Route: 065
     Dates: start: 20201105
  2. ATORVASTATIN [Concomitant]
     Active Substance: ATORVASTATIN
     Indication: Product used for unknown indication
  3. QUININE [Concomitant]
     Active Substance: QUININE
     Indication: Product used for unknown indication
  4. GRANULOCYTE COLONY-STIMULATING FACTOR NOS [Suspect]
     Active Substance: GRANULOCYTE COLONY-STIMULATING FACTOR NOS
     Indication: Small cell lung cancer
     Dosage: D5-10
     Route: 065
  5. ATEZOLIZUMAB [Suspect]
     Active Substance: ATEZOLIZUMAB
     Indication: Small cell lung cancer
     Dosage: D1Q4W
     Route: 065
     Dates: start: 20230217
  6. ATEZOLIZUMAB [Suspect]
     Active Substance: ATEZOLIZUMAB
     Indication: Small cell lung cancer
     Route: 065
     Dates: start: 20201105
  7. ATEZOLIZUMAB [Suspect]
     Active Substance: ATEZOLIZUMAB
     Indication: Small cell lung cancer
     Route: 058
     Dates: start: 202511
  8. ATEZOLIZUMAB [Suspect]
     Active Substance: ATEZOLIZUMAB
     Indication: Small cell lung cancer
     Dosage: D1Q3W
     Route: 065
     Dates: start: 20210204
  9. ATEZOLIZUMAB [Suspect]
     Active Substance: ATEZOLIZUMAB
     Indication: Small cell lung cancer
     Dosage: D1Q3W
     Route: 058
     Dates: start: 20250213
  10. OMEPRAZOLE [Concomitant]
     Active Substance: OMEPRAZOLE
     Indication: Product used for unknown indication
  11. ETOPOSIDE [Suspect]
     Active Substance: ETOPOSIDE
     Indication: Small cell lung cancer
     Dosage: D2-3
     Route: 048
     Dates: start: 20201105
  12. ETOPOSIDE [Suspect]
     Active Substance: ETOPOSIDE
     Indication: Small cell lung cancer
     Dosage: D1
     Route: 042
     Dates: start: 20201105

REACTIONS (9)
  - Oesophageal disorder [Unknown]
  - Hepatic cyst [Unknown]
  - Ill-defined disorder [Recovered/Resolved]
  - Lung disorder [Recovered/Resolved]
  - Lung consolidation [Recovered/Resolved]
  - Inflammation [Recovered/Resolved]
  - Arthropathy [Unknown]
  - Hypothyroidism [Unknown]
  - Skin toxicity [Unknown]

NARRATIVE: CASE EVENT DATE: 20210201
